FAERS Safety Report 6694366-X (Version None)
Quarter: 2010Q2

REPORT INFORMATION
  Report Type: 
  Country: None (occurrence: None)
  Receive Date: 20100421
  Receipt Date: 20100409
  Transmission Date: 20101027
  Serious: Yes (Death, Hospitalization)
  Sender: FDA-Public Use
  Company Number: 2009AC000134

PATIENT
  Age: 81 Year
  Sex: Female

DRUGS (54)
  1. DIGOXIN [Suspect]
     Indication: HEART RATE IRREGULAR
     Dosage: 0.125 MG QD, PO
     Route: 048
     Dates: start: 20070105, end: 20080227
  2. DIGOXIN [Suspect]
     Indication: DRUG USE FOR UNKNOWN INDICATION
     Dosage: .125 MG; PO
     Route: 048
     Dates: start: 20030803, end: 20080301
  3. LIPITOR [Concomitant]
  4. ALDACTONE [Concomitant]
  5. NAMENDA [Concomitant]
  6. VASOTEC [Concomitant]
  7. COLACE [Concomitant]
  8. LASIX [Concomitant]
  9. ARICEPT [Concomitant]
  10. GEODON [Concomitant]
  11. TRIMETHOPRIM [Concomitant]
  12. DETROL [Concomitant]
  13. AVANDIA [Concomitant]
  14. COUMADIN [Concomitant]
  15. TRAVANTAN [Concomitant]
  16. ASPIRIN [Concomitant]
  17. PREMARIN [Concomitant]
  18. PRILOSEC [Concomitant]
  19. NITROFURANTOIN [Concomitant]
  20. NYSTATIN [Concomitant]
  21. GABAPENTIN [Concomitant]
  22. LISINOPRIL [Concomitant]
  23. ACTOS [Concomitant]
  24. NOVOLOG [Concomitant]
  25. GLIPIZIDE [Concomitant]
  26. MEGESTROL ACETATE [Concomitant]
  27. GLUCOVANCE [Concomitant]
  28. ASCENSIA [Concomitant]
  29. SULFAMETHOXAZOLE [Concomitant]
  30. WARFARIN SODIUM [Concomitant]
  31. SPIRONOLACTONE [Concomitant]
  32. ENALAPRIL MALEATE [Concomitant]
  33. PRAVATIN SOLUTION [Concomitant]
  34. MOTRIN [Concomitant]
  35. VITAMIN C [Concomitant]
  36. ATIVAN [Concomitant]
  37. GLUCOTROL XL [Concomitant]
  38. KAYEXALATE [Concomitant]
  39. DOPAMINE HCL [Concomitant]
  40. MORPHINE [Concomitant]
  41. HYDROCHLOROTHIAZIDE [Concomitant]
  42. GLUCOPHAGE [Concomitant]
  43. PREVACID [Concomitant]
  44. NEURONTIN [Concomitant]
  45. NAMENDA [Concomitant]
  46. FERROUS SULFATE TAB [Concomitant]
  47. MULTI-VITAMIN [Concomitant]
  48. MACRODANTIN [Concomitant]
  49. LEVAQUIN [Concomitant]
  50. CIPRO [Concomitant]
  51. ALBUTEROL [Concomitant]
  52. ATROVENT [Concomitant]
  53. SOLU-MEDROL [Concomitant]
  54. CLEOCIN [Concomitant]

REACTIONS (43)
  - ACUTE PRERENAL FAILURE [None]
  - ANXIETY [None]
  - ATRIAL FIBRILLATION [None]
  - AZOTAEMIA [None]
  - BLOOD CHOLESTEROL INCREASED [None]
  - CARDIAC FAILURE CONGESTIVE [None]
  - CARDIOACTIVE DRUG LEVEL ABOVE THERAPEUTIC [None]
  - CAROTID ARTERY STENOSIS [None]
  - CATARACT [None]
  - CHOKING [None]
  - CHRONIC OBSTRUCTIVE PULMONARY DISEASE [None]
  - CONFUSIONAL STATE [None]
  - CORONARY ARTERY DISEASE [None]
  - CULTURE URINE POSITIVE [None]
  - DEMENTIA ALZHEIMER'S TYPE [None]
  - DIABETIC NEPHROPATHY [None]
  - DIABETIC NEUROPATHY [None]
  - DIABETIC RETINOPATHY [None]
  - DISORIENTATION [None]
  - DRUG TOXICITY [None]
  - DYSARTHRIA [None]
  - ECONOMIC PROBLEM [None]
  - FLUID OVERLOAD [None]
  - GASTROOESOPHAGEAL REFLUX DISEASE [None]
  - INTERNATIONAL NORMALISED RATIO INCREASED [None]
  - MITRAL VALVE INCOMPETENCE [None]
  - MOOD SWINGS [None]
  - MULTIPLE INJURIES [None]
  - OPEN ANGLE GLAUCOMA [None]
  - PAIN [None]
  - PNEUMONIA ASPIRATION [None]
  - PROTEUS INFECTION [None]
  - RENAL FAILURE ACUTE [None]
  - RESPIRATORY DISTRESS [None]
  - SEPSIS [None]
  - SPEECH DISORDER [None]
  - TRANSIENT ISCHAEMIC ATTACK [None]
  - TRICUSPID VALVE INCOMPETENCE [None]
  - TYPE 2 DIABETES MELLITUS [None]
  - UNEVALUABLE EVENT [None]
  - URINARY RETENTION [None]
  - URINARY TRACT INFECTION [None]
  - WEIGHT INCREASED [None]
